FAERS Safety Report 7868778-2 (Version None)
Quarter: 2011Q4

REPORT INFORMATION
  Report Type: 
  Country: None (occurrence: None)
  Receive Date: 20111028
  Receipt Date: 20101220
  Transmission Date: 20120403
  Serious: No
  Sender: FDA-Public Use
  Company Number: US-AMGEN-USASP2010010065

PATIENT
  Age: 65 Year
  Sex: Male

DRUGS (2)
  1. ENBREL [Suspect]
     Indication: PSORIATIC ARTHROPATHY
     Dosage: 50 MG, QWK
     Dates: start: 20040928
  2. ENBREL [Suspect]
     Indication: PSORIASIS

REACTIONS (3)
  - INTRAOCULAR PRESSURE INCREASED [None]
  - PARAESTHESIA [None]
  - PAIN [None]
